FAERS Safety Report 10433806 (Version 2)
Quarter: 2015Q1

REPORT INFORMATION
  Report Type: Spontaneous
  Country: US (occurrence: None)
  Receive Date: 20140815
  Receipt Date: 20150129
  Transmission Date: 20150720
  Serious: No
  Sender: FDA-Public Use
  Company Number: A-NJ2014-99332

PATIENT
  Age: 72 Year
  Sex: Female

DRUGS (11)
  1. POTASSIUM [Concomitant]
     Active Substance: POTASSIUM
  2. PREDNISONE. [Concomitant]
     Active Substance: PREDNISONE
  3. OPSUMIT [Suspect]
     Active Substance: MACITENTAN
     Indication: PULMONARY HYPERTENSION
     Route: 048
     Dates: start: 20140415
  4. CRESTOR [Concomitant]
     Active Substance: ROSUVASTATIN CALCIUM
  5. VITAMIN D3 [Concomitant]
     Active Substance: CHOLECALCIFEROL
  6. FUROSEMIDE. [Concomitant]
     Active Substance: FUROSEMIDE
  7. ZANTAC [Concomitant]
     Active Substance: RANITIDINE HYDROCHLORIDE
  8. SINGULAIR (MONTELUKAST SODIUM) [Concomitant]
  9. COMBIVENT (IPRATROPIUM BROMIDE, SALBUTAMOL SULFATE) [Concomitant]
  10. CLARINEX [Concomitant]
     Active Substance: DESLORATADINE
  11. MIRAPEX (PRAMIPEXOLE HYDROCHLORIDE) [Concomitant]

REACTIONS (5)
  - Condition aggravated [None]
  - Oedema [None]
  - Nasal congestion [None]
  - Swelling [None]
  - Dyspnoea [None]

NARRATIVE: CASE EVENT DATE: 20140420
